FAERS Safety Report 6487078-9 (Version None)
Quarter: 2009Q4

REPORT INFORMATION
  Report Type: 
  Country: None (occurrence: None)
  Receive Date: 20091209
  Receipt Date: 20091209
  Transmission Date: 20100525
  Serious: Yes (Other)
  Sender: FDA-Public Use
  Company Number: None

PATIENT
  Age: 54 Year
  Sex: Female
  Weight: 52.1637 kg

DRUGS (1)
  1. PROAIR HFA [Suspect]
     Indication: ASTHMA
     Dosage: 1-2 INHALATIONS 4 TIMES/DAY INHAL
     Route: 055
     Dates: start: 20091101, end: 20091201

REACTIONS (4)
  - DRUG EFFECT DECREASED [None]
  - PALPITATIONS [None]
  - PRODUCT SUBSTITUTION ISSUE [None]
  - TREMOR [None]
